FAERS Safety Report 14798278 (Version 1)
Quarter: 2018Q2

REPORT INFORMATION
  Report Type: Spontaneous
  Country: US (occurrence: US)
  Receive Date: 20180424
  Receipt Date: 20180424
  Transmission Date: 20180711
  Serious: No
  Sender: FDA-Public Use
  Company Number: US-UNICHEM PHARMACEUTICALS (USA) INC-UCM201707-000194

PATIENT
  Sex: Female

DRUGS (2)
  1. DIVALPROEX SODIUM DELAYED RELEASE  500 MG TABLETS [Suspect]
     Active Substance: DIVALPROEX SODIUM
     Dates: start: 20170704
  2. BENADONE [Concomitant]

REACTIONS (2)
  - Adverse drug reaction [Unknown]
  - Reaction to excipient [Unknown]
